FAERS Safety Report 6526485-2 (Version None)
Quarter: 2009Q4

REPORT INFORMATION
  Report Type: 
  Country: None (occurrence: None)
  Receive Date: 20091214
  Receipt Date: 20081105
  Transmission Date: 20100525
  Serious: Yes (Hospitalization)
  Sender: FDA-Public Use
  Company Number: 595488

PATIENT
  Age: 43 Year
  Sex: Female
  Weight: 92.5 kg

DRUGS (13)
  1. PEGASYS [Suspect]
     Indication: HEPATITIS C
     Dosage: 180 UG 1 PER WEEK SUBCUTANEOUS
     Route: 058
     Dates: start: 20081006, end: 20081105
  2. RIBAPAK (RIBAVIRIN) 1200 MG [Suspect]
     Indication: HEPATITIS C
     Dosage: 600 MG 2 PER DAY ORAL
     Route: 048
     Dates: start: 20081006, end: 20081105
  3. NARCOTICS (NARCOTIC NOS) [Concomitant]
  4. DYAZIDE (HYDROCHLOROTHIAZIDE/TRIMTERENE) [Concomitant]
  5. LASIX [Concomitant]
  6. POTASSIUM CHLORIDE [Concomitant]
  7. MS CONTIN [Concomitant]
  8. DILANDIOL (HYDROMORPHONE) [Concomitant]
  9. FIORICET [Concomitant]
  10. AMBIEN [Concomitant]
  11. TOPAMAX [Concomitant]
  12. LYRICA [Concomitant]
  13. SOMA [Concomitant]

REACTIONS (2)
  - PANCREATIC ENZYMES INCREASED [None]
  - PANCREATITIS [None]
